FAERS Safety Report 6912489-4 (Version None)
Quarter: 2010Q3

REPORT INFORMATION
  Report Type: 
  Country: None (occurrence: None)
  Receive Date: 20100806
  Receipt Date: 20080620
  Transmission Date: 20110219
  Serious: No
  Sender: FDA-Public Use
  Company Number: US-PFIZER INC-2008043594

PATIENT
  Sex: Female
  Weight: 92.99 kg

DRUGS (1)
  1. CYTOTEC [Suspect]
     Indication: INDUCED LABOUR
     Route: 067
     Dates: start: 20080225, end: 20080225

REACTIONS (4)
  - HUMAN PAPILLOMA VIRUS TEST POSITIVE [None]
  - OFF LABEL USE [None]
  - PELVIC PAIN [None]
  - SMEAR CERVIX ABNORMAL [None]
